FAERS Safety Report 9117947 (Version 2)
Quarter: 2013Q2

REPORT INFORMATION
  Report Type: Spontaneous
  Country: US (occurrence: US)
  Receive Date: 20130208
  Receipt Date: 20130419
  Transmission Date: 20140414
  Serious: Yes (Other)
  Sender: FDA-Public Use
  Company Number: US-ELI_LILLY_AND_COMPANY-US201205005055

PATIENT
  Sex: Female

DRUGS (1)
  1. FORTEO [Suspect]
     Indication: OSTEOPOROSIS
     Dosage: 20 UG, QD
     Dates: start: 201112

REACTIONS (8)
  - Pleural effusion [Unknown]
  - Cardiac failure congestive [Unknown]
  - Hypotension [Unknown]
  - Gait disturbance [Unknown]
  - Dizziness [Unknown]
  - Arthralgia [Unknown]
  - Drug dose omission [Unknown]
  - Heart rate irregular [Unknown]
